FAERS Safety Report 14304140 (Version 1)
Quarter: 2017Q4

REPORT INFORMATION
  Report Type: Spontaneous
  Country: JP (occurrence: JP)
  Receive Date: 20171219
  Receipt Date: 20171219
  Transmission Date: 20180321
  Serious: Yes (Death, Life-Threatening, Hospitalization, Other)
  Sender: FDA-Public Use
  Company Number: JP-OTSUKA-BJ20120230

PATIENT
  Age: 80 Year
  Sex: Male
  Weight: 45 kg

DRUGS (1)
  1. ABILIFY [Suspect]
     Active Substance: ARIPIPRAZOLE
     Indication: PSYCHIATRIC SYMPTOM
     Dosage: 6 MG, BID
     Route: 048
     Dates: start: 20120110, end: 20120113

REACTIONS (7)
  - Thrombocytopenia [Unknown]
  - Pyrexia [Not Recovered/Not Resolved]
  - Peripheral arterial occlusive disease [Fatal]
  - Liver disorder [Not Recovered/Not Resolved]
  - Pneumonia [Unknown]
  - Necrosis ischaemic [Fatal]
  - Diastolic hypertension [Unknown]

NARRATIVE: CASE EVENT DATE: 20120114
